FAERS Safety Report 17915188 (Version 2)
Quarter: 2020Q3

REPORT INFORMATION
  Report Type: Spontaneous
  Country: DE (occurrence: FR)
  Receive Date: 20200619
  Receipt Date: 20200723
  Transmission Date: 20201103
  Serious: Yes (Other)
  Sender: FDA-Public Use
  Company Number: FR-BRISTOL-MYERS SQUIBB COMPANY-BMS-2020-047058

PATIENT
  Age: 82 Year
  Sex: Male
  Weight: 65 kg

DRUGS (2)
  1. CILOXADEX [Suspect]
     Active Substance: CIPROFLOXACIN HYDROCHLORIDE\DEXAMETHASONE
     Indication: EAR INFECTION
     Dosage: 10 DROP, 1DAY
     Route: 001
     Dates: end: 20200529
  2. COUMADINE [Suspect]
     Active Substance: WARFARIN SODIUM
     Indication: PAROXYSMAL ARRHYTHMIA
     Dosage: UNK
     Route: 048

REACTIONS (2)
  - Dizziness [Not Recovered/Not Resolved]
  - Paroxysmal arrhythmia [Not Recovered/Not Resolved]

NARRATIVE: CASE EVENT DATE: 20200512
